FAERS Safety Report 10640822 (Version 1)
Quarter: 2014Q4

REPORT INFORMATION
  Report Type: Spontaneous
  Country: NL (occurrence: NL)
  Receive Date: 20141209
  Receipt Date: 20141209
  Transmission Date: 20150529
  Serious: Yes (Other)
  Sender: FDA-Public Use
  Company Number: NL-TEVA-526324ISR

PATIENT
  Sex: Male

DRUGS (1)
  1. ENALAPRILMALEAAT TEVA 20 MG, TABLETTEN [Suspect]
     Active Substance: ENALAPRIL
     Dates: start: 2014, end: 2014

REACTIONS (3)
  - Myalgia [Recovered/Resolved]
  - Abasia [Recovered/Resolved]
  - Product substitution issue [Recovered/Resolved]

NARRATIVE: CASE EVENT DATE: 2014
